FAERS Safety Report 10573074 (Version 1)
Quarter: 2014Q4

REPORT INFORMATION
  Report Type: Spontaneous
  Country: US (occurrence: None)
  Receive Date: 20141107
  Receipt Date: 20141107
  Transmission Date: 20150529
  Serious: No
  Sender: FDA-Public Use
  Company Number: None

PATIENT
  Age: 66 Year
  Sex: Female
  Weight: 56.7 kg

DRUGS (1)
  1. CLINDAMYCIN [Suspect]
     Active Substance: CLINDAMYCIN\CLINDAMYCIN PHOSPHATE
     Indication: TOOTH EXTRACTION
     Dosage: TAKEN BY MOUTH
     Route: 048
     Dates: start: 20140908, end: 20140912

REACTIONS (3)
  - Diarrhoea [None]
  - Abdominal pain upper [None]
  - Mucous stools [None]

NARRATIVE: CASE EVENT DATE: 20140929
